FAERS Safety Report 12818310 (Version 2)
Quarter: 2016Q4

REPORT INFORMATION
  Report Type: Spontaneous
  Country: US (occurrence: US)
  Receive Date: 20161005
  Receipt Date: 20161012
  Transmission Date: 20170207
  Serious: Yes (Hospitalization)
  Sender: FDA-Public Use
  Company Number: PHEH2016US025089

PATIENT
  Age: 15 Year
  Sex: Female

DRUGS (1)
  1. JADENU [Suspect]
     Active Substance: DEFERASIROX
     Indication: SICKLE CELL ANAEMIA
     Dosage: 1080 MG, UNK
     Route: 048
     Dates: start: 20150922, end: 20160921

REACTIONS (8)
  - Blood bilirubin increased [Unknown]
  - Hepatic enzyme increased [Recovering/Resolving]
  - Abdominal tenderness [Unknown]
  - Abdominal pain [Unknown]
  - Nausea [Unknown]
  - Chromaturia [Unknown]
  - Hepatotoxicity [Recovered/Resolved]
  - Jaundice [Unknown]

NARRATIVE: CASE EVENT DATE: 20160921
